FAERS Safety Report 8460666-6 (Version None)
Quarter: 2012Q2

REPORT INFORMATION
  Report Type: 
  Country: None (occurrence: None)
  Receive Date: 20120622
  Receipt Date: 20120618
  Transmission Date: 20120825
  Serious: Yes (Other)
  Sender: FDA-Public Use
  Company Number: PHHY2012JP048630

PATIENT
  Age: 45 Year
  Sex: Male

DRUGS (1)
  1. VOLTAREN [Suspect]
     Indication: FRACTURE PAIN
     Route: 054
     Dates: start: 20120601, end: 20120601

REACTIONS (2)
  - VOLUME BLOOD DECREASED [None]
  - BLOOD PRESSURE DECREASED [None]
